FAERS Safety Report 17928286 (Version 1)
Quarter: 2020Q2

REPORT INFORMATION
  Report Type: Spontaneous
  Country: IL (occurrence: IL)
  Receive Date: 20200623
  Receipt Date: 20200623
  Transmission Date: 20200714
  Serious: Yes (Hospitalization, Other)
  Sender: FDA-Public Use
  Company Number: IL-ROCHE-2628712

PATIENT
  Age: 71 Year
  Sex: Male

DRUGS (1)
  1. HEMLIBRA [Suspect]
     Active Substance: EMICIZUMAB-KXWH
     Indication: FACTOR VIII DEFICIENCY
     Route: 065
     Dates: start: 2020

REACTIONS (4)
  - Fall [Unknown]
  - Haemoglobin decreased [Recovering/Resolving]
  - Arterial haemorrhage [Recovering/Resolving]
  - Traumatic haemorrhage [Recovering/Resolving]
